FAERS Safety Report 6326266-9 (Version None)
Quarter: 2009Q3

REPORT INFORMATION
  Report Type: 
  Country: None (occurrence: None)
  Receive Date: 20090824
  Receipt Date: 20090807
  Transmission Date: 20100115
  Serious: Yes (Other)
  Sender: FDA-Public Use
  Company Number: AR-GENENTECH-288962

PATIENT
  Age: 36 Year
  Sex: Female

DRUGS (2)
  1. MABTHERA [Suspect]
     Indication: COLLAGEN-VASCULAR DISEASE
     Dosage: 300 MG, UNK
     Route: 042
     Dates: start: 20090720, end: 20090806
  2. CORTICOSTEROIDS (UNK INGREDIENTS) [Concomitant]
     Indication: DRUG USE FOR UNKNOWN INDICATION

REACTIONS (6)
  - ARTHRALGIA [None]
  - JOINT SWELLING [None]
  - MYALGIA [None]
  - PYREXIA [None]
  - RASH [None]
  - THROMBOCYTOPENIA [None]
